FAERS Safety Report 17551029 (Version 1)
Quarter: 2020Q1

REPORT INFORMATION
  Report Type: Spontaneous
  Country: US (occurrence: US)
  Receive Date: 20200317
  Receipt Date: 20200317
  Transmission Date: 20200409
  Serious: Yes (Other)
  Sender: FDA-Public Use
  Company Number: US-ASTELLAS-2020US008864

PATIENT
  Age: 77 Year
  Sex: Male

DRUGS (4)
  1. LEXISCAN [Suspect]
     Active Substance: REGADENOSON
     Indication: CARDIAC STRESS TEST
     Dosage: UNK, UNKNOWN FREQ.
     Route: 065
     Dates: start: 20181031, end: 20181031
  2. LEXISCAN [Suspect]
     Active Substance: REGADENOSON
     Indication: CARDIAC STRESS TEST
     Dosage: UNK, UNKNOWN FREQ.
     Route: 065
     Dates: start: 20181031, end: 20181031
  3. LEXISCAN [Suspect]
     Active Substance: REGADENOSON
     Indication: CARDIAC STRESS TEST
     Dosage: UNK, UNKNOWN FREQ.
     Route: 065
     Dates: start: 20181031, end: 20181031
  4. LEXISCAN [Suspect]
     Active Substance: REGADENOSON
     Indication: CARDIAC STRESS TEST
     Dosage: UNK, UNKNOWN FREQ.
     Route: 065
     Dates: start: 20181031, end: 20181031

REACTIONS (3)
  - Ageusia [Unknown]
  - Deafness unilateral [Unknown]
  - Anosmia [Unknown]

NARRATIVE: CASE EVENT DATE: 2018
